FAERS Safety Report 5240899-2 (Version None)
Quarter: 2007Q1

REPORT INFORMATION
  Report Type: 
  Country: None (occurrence: None)
  Receive Date: 20061208
  Receipt Date: 20050809
  Transmission Date: 20070707
  Serious: Yes (Other)
  Sender: FDA-Public Use
  Company Number: 2005UW11916

PATIENT
  Sex: Male

DRUGS (5)
  1. CRESTOR [Suspect]
     Dosage: 20 MG PO
     Route: 048
  2. TRICOR [Concomitant]
  3. GLUCOPHAGE [Concomitant]
  4. BENICAR [Concomitant]
  5. ZETIA [Concomitant]

REACTIONS (5)
  - ALANINE AMINOTRANSFERASE INCREASED [None]
  - ASPARTATE AMINOTRANSFERASE INCREASED [None]
  - BLOOD CREATINE PHOSPHOKINASE INCREASED [None]
  - MYALGIA [None]
  - WEIGHT DECREASED [None]
